FAERS Safety Report 8081125-9 (Version None)
Quarter: 2012Q1

REPORT INFORMATION
  Report Type: 
  Country: None (occurrence: None)
  Receive Date: 20120130
  Receipt Date: 20101115
  Transmission Date: 20120608
  Serious: Yes (Other)
  Sender: FDA-Public Use
  Company Number: US-GLAXOSMITHKLINE-A0894353A

PATIENT
  Age: 55 Year
  Sex: Male
  Weight: 137.7 kg

DRUGS (5)
  1. GLIPIZIDE [Concomitant]
  2. PREVACID [Concomitant]
  3. METFFORMIN HYDROCHLORIDE [Concomitant]
  4. LIPITOR [Concomitant]
  5. AVANDIA [Suspect]
     Indication: TYPE 2 DIABETES MELLITUS
     Dosage: 4MG PER DAY
     Route: 048
     Dates: start: 20041101, end: 20070612

REACTIONS (5)
  - HYPERTENSION [None]
  - CARDIAC FAILURE CONGESTIVE [None]
  - CARDIAC DISORDER [None]
  - PARAESTHESIA [None]
  - CONGESTIVE CARDIOMYOPATHY [None]
